FAERS Safety Report 8949443 (Version 1)
Quarter: 2012Q4

REPORT INFORMATION
  Report Type: 
  Country: DK (occurrence: DK)
  Receive Date: 20121206
  Receipt Date: 20121206
  Transmission Date: 20130627
  Serious: Yes (Congenital Anomaly)
  Sender: FDA-Public Use
  Company Number: DK-FRI-1000040819

PATIENT
  Sex: Female

DRUGS (2)
  1. CITALOPRAM [Suspect]
     Dosage: 20 mg alternating with 30 mg QOD
     Route: 064
  2. ELTROXIN [Suspect]
     Indication: MYXOEDEMA
     Dosage: 200 mcg
     Route: 064

REACTIONS (3)
  - Infantile colic [Unknown]
  - Dyssomnia [Recovered/Resolved]
  - Foetal exposure during pregnancy [Recovered/Resolved]
